FAERS Safety Report 9993889 (Version 2)
Quarter: 2014Q1

REPORT INFORMATION
  Report Type: Spontaneous
  Country: US (occurrence: US)
  Receive Date: 20140310
  Receipt Date: 20140313
  Transmission Date: 20141002
  Serious: No
  Sender: FDA-Public Use
  Company Number: US-009507513-1402USA012908

PATIENT
  Age: 73 Year
  Sex: Male

DRUGS (5)
  1. PROVENTIL [Suspect]
     Dosage: 2 PUFFS EVERY 6 HOURS AS NEEDED, Q6H
     Route: 055
     Dates: start: 20140221
  2. BENZONATATE [Concomitant]
  3. Z-PAK [Concomitant]
  4. PREDNISONE [Concomitant]
  5. ROBITUSSIN WITH CODEINE [Concomitant]

REACTIONS (3)
  - Dysgeusia [Recovered/Resolved]
  - Product taste abnormal [Unknown]
  - Drug dose omission [Unknown]
